FAERS Safety Report 14057855 (Version 2)
Quarter: 2017Q4

REPORT INFORMATION
  Report Type: Report from Study
  Country: PK (occurrence: PK)
  Receive Date: 20171006
  Receipt Date: 20171016
  Transmission Date: 20180321
  Serious: Yes (Death, Other)
  Sender: FDA-Public Use
  Company Number: PHHY2017PK147207

PATIENT
  Age: 65 Year
  Sex: Female

DRUGS (1)
  1. ACLASTA [Suspect]
     Active Substance: ZOLEDRONIC ACID
     Indication: OSTEOPOROSIS
     Dosage: 1 DF (5MG/100ML), Q12MO
     Route: 042

REACTIONS (4)
  - Paralysis [Unknown]
  - Blood pressure abnormal [Unknown]
  - Cardio-respiratory arrest [Fatal]
  - Blood glucose abnormal [Unknown]
